FAERS Safety Report 13206450 (Version 2)
Quarter: 2017Q1

REPORT INFORMATION
  Report Type: Spontaneous
  Country: DE (occurrence: DE)
  Receive Date: 20170208
  Receipt Date: 20170217
  Transmission Date: 20170428
  Serious: Yes (Hospitalization)
  Sender: FDA-Public Use
  Company Number: DE-JNJFOC-20170206845

PATIENT
  Age: 67 Year
  Sex: Male
  Weight: 94 kg

DRUGS (2)
  1. XARELTO [Suspect]
     Active Substance: RIVAROXABAN
     Indication: PRODUCT USED FOR UNKNOWN INDICATION
     Route: 048
  2. IBRUTINIB [Concomitant]
     Active Substance: IBRUTINIB
     Route: 065
     Dates: start: 20150106, end: 20150507

REACTIONS (2)
  - Splenic haemorrhage [Unknown]
  - Splenic rupture [Not Recovered/Not Resolved]

NARRATIVE: CASE EVENT DATE: 20161223
